FAERS Safety Report 8557554-3 (Version None)
Quarter: 2012Q3

REPORT INFORMATION
  Report Type: 
  Country: None (occurrence: None)
  Receive Date: 20120801
  Receipt Date: 20120723
  Transmission Date: 20120928
  Serious: Yes (Other)
  Sender: FDA-Public Use
  Company Number: US-ASTRAZENECA-2012SE25833

PATIENT
  Age: 36 Year
  Sex: Male
  Weight: 110.2 kg

DRUGS (24)
  1. XANAX [Concomitant]
  2. SEROQUEL [Suspect]
     Route: 048
  3. SEROQUEL [Suspect]
     Route: 048
  4. MS CONTIN [Suspect]
     Route: 065
  5. SEROQUEL [Suspect]
     Route: 048
  6. SEROQUEL [Suspect]
     Route: 048
     Dates: start: 20080801
  7. SILENOR [Concomitant]
  8. SAPHRIS [Concomitant]
  9. SEROQUEL [Suspect]
     Route: 048
  10. SEROQUEL [Suspect]
     Route: 048
     Dates: start: 20080801
  11. SEROQUEL [Suspect]
     Route: 048
     Dates: start: 20080801
  12. SEROQUEL [Suspect]
     Route: 048
     Dates: start: 20080801
  13. KLONOPIN [Concomitant]
  14. ZYPREXA [Concomitant]
  15. ALPRAZOLAM [Concomitant]
  16. SEROQUEL [Suspect]
     Indication: POST-TRAUMATIC STRESS DISORDER
     Route: 048
     Dates: start: 20090101, end: 20111231
  17. SEROQUEL [Suspect]
     Indication: SLEEP DISORDER
     Route: 048
     Dates: start: 20090101, end: 20111231
  18. SEROQUEL [Suspect]
     Indication: BIPOLAR I DISORDER
     Route: 048
     Dates: start: 20090101, end: 20111231
  19. SEROQUEL [Suspect]
     Indication: DEPRESSION
     Route: 048
     Dates: start: 20090101, end: 20111231
  20. SEROQUEL [Suspect]
     Route: 048
  21. CYMBALTA [Concomitant]
  22. SEROQUEL [Suspect]
     Route: 048
     Dates: start: 20080801
  23. SEROQUEL [Suspect]
     Indication: STRESS
     Route: 048
     Dates: start: 20090101, end: 20111231
  24. AMITRIPTLINE HYDROCHLORIDE TAB [Concomitant]

REACTIONS (7)
  - SOMNOLENCE [None]
  - SHOCK [None]
  - OFF LABEL USE [None]
  - INSOMNIA [None]
  - DRUG DOSE OMISSION [None]
  - FATIGUE [None]
  - HANGOVER [None]
